FAERS Safety Report 7520933-7 (Version None)
Quarter: 2011Q2

REPORT INFORMATION
  Report Type: 
  Country: None (occurrence: None)
  Receive Date: 20110603
  Receipt Date: 20101130
  Transmission Date: 20111010
  Serious: Yes (Life-Threatening, Hospitalization, Other)
  Sender: FDA-Public Use
  Company Number: CA-BAYER-2010-002802

PATIENT
  Age: 30 Year
  Sex: Female

DRUGS (1)
  1. YASMIN [Suspect]
     Indication: ORAL CONTRACEPTION
     Dosage: UNK
     Route: 048
     Dates: start: 20041201, end: 20090607

REACTIONS (4)
  - CHOLELITHIASIS [None]
  - PANCREATITIS [None]
  - PULMONARY EMBOLISM [None]
  - ABDOMINAL PAIN [None]
